FAERS Safety Report 23690076 (Version 3)
Quarter: 2025Q1

REPORT INFORMATION
  Report Type: Spontaneous
  Country: IT (occurrence: IT)
  Receive Date: 20240401
  Receipt Date: 20250212
  Transmission Date: 20250408
  Serious: Yes (Congenital Anomaly)
  Sender: AUROBINDO
  Company Number: IT-002147023-NVSC2024IT057125

PATIENT
  Sex: Male
  Weight: 2.85 kg

DRUGS (1)
  1. FINGOLIMOD [Suspect]
     Active Substance: FINGOLIMOD
     Indication: Product used for unknown indication
     Route: 064

REACTIONS (2)
  - Klinefelter^s syndrome [Unknown]
  - Foetal exposure during pregnancy [Unknown]
